FAERS Safety Report 7649187-8 (Version None)
Quarter: 2011Q3

REPORT INFORMATION
  Report Type: 
  Country: None (occurrence: None)
  Receive Date: 20110726
  Receipt Date: 20110711
  Transmission Date: 20111222
  Serious: Yes (Hospitalization, Other)
  Sender: FDA-Public Use
  Company Number: UCM201107-000027

PATIENT
  Age: 54 Year
  Sex: Female
  Weight: 65 kg

DRUGS (9)
  1. DORIPENEM MONOHYDRATE [Suspect]
     Indication: PNEUMONIA ASPIRATION
     Dosage: 500 MG EVERY 8 HOURS, INTRAVENOUS
     Route: 042
  2. DIVALPROEX SODIUM [Suspect]
     Dosage: 1500 MG (23 MG/KG) OVER 1 HOUR, INTRAVENOUS
     Route: 042
  3. DIVALPROEX SODIUM [Suspect]
     Dosage: SEE IMAGE
     Route: 040
  4. ALBUTEROL SULFATE AND IPRATROPIUM BROMIDE [Concomitant]
  5. DIVALPROEX SODIUM [Suspect]
     Indication: CONVULSION
     Dosage: 750 MG DAILY (11.5 MG/KG/DAY), ORAL
     Route: 048
  6. DIVALPROEX SODIUM [Suspect]
     Dosage: 250 MG EVERY 8 HOURS (NASOGASTRIC TUB), NASOGASTRIC TUB
  7. METHYLPREDNISOLONE [Concomitant]
  8. CLINDAMYCIN [Suspect]
     Indication: PNEUMONIA ASPIRATION
     Dosage: 600 MG EVERY 8 HOURS, INTRAVENOUS
     Route: 042
  9. DOXYCYCLINE [Concomitant]

REACTIONS (7)
  - ANTICONVULSANT DRUG LEVEL DECREASED [None]
  - PNEUMONIA ASPIRATION [None]
  - CHRONIC OBSTRUCTIVE PULMONARY DISEASE [None]
  - DRUG INTERACTION [None]
  - CONVULSION [None]
  - TREATMENT NONCOMPLIANCE [None]
  - CONDITION AGGRAVATED [None]
